FAERS Safety Report 4305275-5 (Version None)
Quarter: 2004Q1

REPORT INFORMATION
  Report Type: 
  Country: None (occurrence: None)
  Receive Date: 20040226
  Receipt Date: 20030127
  Transmission Date: 20041129
  Serious: No
  Sender: FDA-Public Use
  Company Number: US-BRISTOL-MYERS SQUIBB COMPANY-12168670

PATIENT
  Age: 53 Year
  Sex: Female
  Weight: 97 kg

DRUGS (16)
  1. PACLITAXEL [Suspect]
     Indication: BREAST CANCER
     Dosage: INITIAL DOSE ON 15-NOV-2002
     Route: 042
     Dates: start: 20021201, end: 20021201
  2. HERCEPTIN [Concomitant]
  3. COUMADIN [Concomitant]
  4. KLOR-CON [Concomitant]
  5. SUCRALFATE [Concomitant]
  6. LESCOL [Concomitant]
  7. TYLENOL W/ CODEINE NO. 3 [Concomitant]
  8. BEXTRA [Concomitant]
  9. VITAMIN E [Concomitant]
  10. VITAMIN CAP [Concomitant]
  11. FOLIC ACID [Concomitant]
  12. ANZEMET [Concomitant]
     Indication: PREMEDICATION
  13. HEXADROL [Concomitant]
     Indication: PREMEDICATION
  14. ZANTAC [Concomitant]
     Indication: PREMEDICATION
  15. BENADRYL [Concomitant]
     Indication: PREMEDICATION
  16. PROCHLORPERAZINE [Concomitant]

REACTIONS (1)
  - RASH [None]
